FAERS Safety Report 9370260 (Version 1)
Quarter: 2013Q2

REPORT INFORMATION
  Report Type: Spontaneous
  Country: GB (occurrence: GB)
  Receive Date: 20130626
  Receipt Date: 20130626
  Transmission Date: 20140414
  Serious: No
  Sender: FDA-Public Use
  Company Number: GB-JNJFOC-20100605921

PATIENT
  Sex: Female
  Weight: 80 kg

DRUGS (5)
  1. STELARA [Suspect]
     Indication: PSORIASIS
     Route: 058
  2. PREDNISOLONE [Suspect]
     Indication: PSORIASIS
     Route: 065
  3. PREDNISOLONE [Suspect]
     Indication: PSORIASIS
     Route: 065
  4. PREDNISOLONE [Suspect]
     Indication: PSORIASIS
     Route: 065
  5. PREDNISOLONE [Suspect]
     Indication: PSORIASIS
     Route: 065

REACTIONS (2)
  - Erythrodermic psoriasis [Not Recovered/Not Resolved]
  - Psoriatic arthropathy [Not Recovered/Not Resolved]
